FAERS Safety Report 9253648 (Version 4)
Quarter: 2013Q2

REPORT INFORMATION
  Report Type: Spontaneous
  Country: JP (occurrence: JP)
  Receive Date: 20130425
  Receipt Date: 20130606
  Transmission Date: 20140414
  Serious: Yes (Death, Other)
  Sender: FDA-Public Use
  Company Number: JP-009507513-1304JPN013535

PATIENT
  Age: 40 Year
  Sex: Male

DRUGS (5)
  1. PROPECIA TABLETS 1MG [Suspect]
     Indication: ANDROGENETIC ALOPECIA
     Dosage: DAILY DOSE UNKNOWN
     Route: 048
  2. LOXONIN [Concomitant]
     Dosage: DAILY DOSE UNKNOWN
     Route: 048
  3. ASTOMIN [Concomitant]
     Dosage: DAILY DOSE UNKNOWN
     Route: 048
  4. MUCOSOLVAN [Concomitant]
     Dosage: DAILY DOSE UNKNOWN
     Route: 048
  5. MUCOSTA [Concomitant]
     Dosage: DAILY DOSE UNKNOWN
     Route: 048

REACTIONS (2)
  - Cardio-respiratory arrest [Fatal]
  - Ventricular fibrillation [Fatal]
